FAERS Safety Report 5349554-1 (Version None)
Quarter: 2007Q2

REPORT INFORMATION
  Report Type: 
  Country: None (occurrence: None)
  Receive Date: 20070510
  Receipt Date: 20070305
  Transmission Date: 20071010
  Serious: No
  Sender: FDA-Public Use
  Company Number: WAES 0703USA00730

PATIENT
  Age: 70 Year
  Sex: Female

DRUGS (1)
  1. ZOLINZA [Suspect]
     Indication: T-CELL LYMPHOMA
     Dosage: 400 MG/DAILY/PO
     Route: 047
     Dates: start: 20070101, end: 20070301

REACTIONS (2)
  - ANAEMIA [None]
  - FATIGUE [None]
